FAERS Safety Report 4332156-3 (Version None)
Quarter: 2004Q1

REPORT INFORMATION
  Report Type: 
  Country: None (occurrence: None)
  Receive Date: 20040329
  Receipt Date: 20040315
  Transmission Date: 20041129
  Serious: Yes (Hospitalization)
  Sender: FDA-Public Use
  Company Number: 2004204017US

PATIENT
  Sex: Female

DRUGS (2)
  1. ROGAINE [Suspect]
     Indication: ALOPECIA
     Dosage: 1 ML, BID, TOPICAL
     Route: 061
     Dates: start: 20040201
  2. ESTROGEN [Suspect]

REACTIONS (3)
  - FACTOR V LEIDEN MUTATION [None]
  - ROAD TRAFFIC ACCIDENT [None]
  - THROMBOSIS [None]
